FAERS Safety Report 5244070-X (Version None)
Quarter: 2007Q1

REPORT INFORMATION
  Report Type: 
  Country: None (occurrence: None)
  Receive Date: 20070212
  Receipt Date: 20070125
  Transmission Date: 20070707
  Serious: Yes (Hospitalization)
  Sender: FDA-Public Use
  Company Number: THYM-11225

PATIENT
  Age: 16 Year
  Sex: Female
  Weight: 41 kg

DRUGS (7)
  1. THYMOGLOBULIN [Suspect]
     Indication: KIDNEY TRANSPLANT REJECTION
     Dosage: 30 MG QD; IV
     Route: 042
     Dates: start: 20061223, end: 20061223
  2. THYMOGLOBULIN [Suspect]
     Indication: KIDNEY TRANSPLANT REJECTION
     Dosage: 60 MG QD; IV
     Route: 042
     Dates: start: 20061224, end: 20061226
  3. THYMOGLOBULIN [Suspect]
     Indication: KIDNEY TRANSPLANT REJECTION
     Dosage: 40 MG, QD; IV
     Route: 042
     Dates: start: 20061227, end: 20061228
  4. THYMOGLOBULIN [Suspect]
     Indication: KIDNEY TRANSPLANT REJECTION
     Dosage: 25 MG QD; IV
     Route: 042
     Dates: start: 20061229, end: 20070104
  5. PROGRAF [Concomitant]
  6. CELLCEPT [Concomitant]
  7. SOLU-MEDROL [Concomitant]

REACTIONS (15)
  - DIPLOPIA [None]
  - EAR PAIN [None]
  - EYE PAIN [None]
  - EYELID PTOSIS [None]
  - FRACTURE [None]
  - HAEMATOMA [None]
  - HEADACHE [None]
  - HYPERTHERMIA [None]
  - LEUKOPENIA [None]
  - MYALGIA [None]
  - NEOPLASM [None]
  - ODYNOPHAGIA [None]
  - PAIN [None]
  - TUMOUR NECROSIS [None]
  - VITH NERVE PARALYSIS [None]
